FAERS Safety Report 17561916 (Version 1)
Quarter: 2020Q1

REPORT INFORMATION
  Report Type: Report from Study
  Country: MX (occurrence: MX)
  Receive Date: 20200319
  Receipt Date: 20200319
  Transmission Date: 20200409
  Serious: Yes (Other)
  Sender: FDA-Public Use
  Company Number: MX-UCBSA-2020010971

PATIENT
  Age: 2 Year
  Sex: Female
  Weight: 44 kg

DRUGS (2)
  1. LEVETIRACETAM. [Suspect]
     Active Substance: LEVETIRACETAM
     Dosage: 6 MILLILITER, 2X/DAY (BID)
     Route: 048
     Dates: start: 20200223
  2. LEVETIRACETAM. [Suspect]
     Active Substance: LEVETIRACETAM
     Indication: SEIZURE
     Dosage: 1.5 MILLILITER, 2X/DAY (BID)
     Route: 048
     Dates: start: 201107

REACTIONS (3)
  - Off label use [Unknown]
  - Seizure [Recovered/Resolved]
  - Learning disorder [Not Recovered/Not Resolved]

NARRATIVE: CASE EVENT DATE: 201107
